FAERS Safety Report 14680456 (Version 1)
Quarter: 2018Q1

REPORT INFORMATION
  Report Type: Spontaneous
  Country: US (occurrence: US)
  Receive Date: 20180326
  Receipt Date: 20180326
  Transmission Date: 20180509
  Serious: No
  Sender: FDA-Public Use
  Company Number: US-BAYER-2018-056687

PATIENT
  Age: 62 Year
  Sex: Male
  Weight: 92.97 kg

DRUGS (3)
  1. TAMSULOSIN [Concomitant]
     Active Substance: TAMSULOSIN
  2. ALEVE [Suspect]
     Active Substance: NAPROXEN SODIUM
     Indication: PAIN
     Dosage: 2 DF, BID
     Route: 048
     Dates: start: 20180313, end: 20180320
  3. PROSCAR [Concomitant]
     Active Substance: FINASTERIDE

REACTIONS (3)
  - Joint swelling [Recovered/Resolved]
  - Incorrect dosage administered [Unknown]
  - Product prescribing issue [Unknown]

NARRATIVE: CASE EVENT DATE: 201803
